FAERS Safety Report 5526099-7 (Version None)
Quarter: 2007Q4

REPORT INFORMATION
  Report Type: 
  Country: None (occurrence: None)
  Receive Date: 20071120
  Receipt Date: 20071109
  Transmission Date: 20080405
  Serious: Yes (Life-Threatening, Hospitalization)
  Sender: FDA-Public Use
  Company Number: TCI2007A04334

PATIENT
  Age: 63 Year
  Sex: Male

DRUGS (3)
  1. ACTOS [Suspect]
     Indication: DIABETES MELLITUS
     Dosage: 15 MG (15 MG, 1 IN 1 D) PER ORAL
     Route: 048
     Dates: start: 20070720, end: 20070820
  2. AMARYL [Concomitant]
  3. LOCHOL (FLUVASTATIN SODIUM) [Concomitant]

REACTIONS (6)
  - CARDIAC FAILURE CONGESTIVE [None]
  - HAEMODIALYSIS [None]
  - HYDRONEPHROSIS [None]
  - POSTRENAL FAILURE [None]
  - PULMONARY OEDEMA [None]
  - RETROPERITONEAL FIBROSIS [None]
